FAERS Safety Report 7150102-4 (Version None)
Quarter: 2010Q4

REPORT INFORMATION
  Report Type: 
  Country: None (occurrence: None)
  Receive Date: 20101210
  Receipt Date: 20101201
  Transmission Date: 20110411
  Serious: Yes (Hospitalization, Other)
  Sender: FDA-Public Use
  Company Number: US-PAR PHARMACEUTICAL, INC-2010SCPR002317

PATIENT
  Age: 64 Year
  Sex: Female

DRUGS (1)
  1. DEXAMETHASONE [Suspect]
     Indication: CENTRAL NERVOUS SYSTEM LYMPHOMA
     Dosage: 4 MG, EVERY 6 HOURS
     Route: 042

REACTIONS (4)
  - AORTIC STENOSIS [None]
  - BLOOD LACTATE DEHYDROGENASE INCREASED [None]
  - LUNG NEOPLASM [None]
  - PNEUMONIA LEGIONELLA [None]
